FAERS Safety Report 6423108-8 (Version None)
Quarter: 2009Q4

REPORT INFORMATION
  Report Type: 
  Country: None (occurrence: None)
  Receive Date: 20091102
  Receipt Date: 20091021
  Transmission Date: 20100525
  Serious: Yes (Hospitalization)
  Sender: FDA-Public Use
  Company Number: AT-ELI_LILLY_AND_COMPANY-AT200910000618

PATIENT
  Age: 40 Year
  Sex: Male
  Weight: 102.9 kg

DRUGS (6)
  1. CYMBALTA [Suspect]
     Dosage: 30 MG, DAILY (1/D)
     Dates: start: 20090609, end: 20090610
  2. CYMBALTA [Suspect]
     Dosage: 60 MG, DAILY (1/D)
     Dates: start: 20090611, end: 20090612
  3. CYMBALTA [Suspect]
     Dosage: 90 MG, DAILY (1/D)
     Dates: start: 20090613, end: 20090616
  4. TRAZODONE HCL [Concomitant]
     Dosage: 150 MG, DAILY (1/D)
     Dates: start: 20090603, end: 20090625
  5. ZOPICLON [Concomitant]
     Dosage: 7.5 MG, DAILY (1/D)
     Dates: start: 20090614, end: 20090624
  6. MAGNESIUM VERLA /00648601/ [Concomitant]
     Dosage: UNK, UNKNOWN

REACTIONS (2)
  - ACCOMMODATION DISORDER [None]
  - VISION BLURRED [None]
